FAERS Safety Report 5800099-1 (Version None)
Quarter: 2008Q2

REPORT INFORMATION
  Report Type: 
  Country: None (occurrence: None)
  Receive Date: 20080626
  Receipt Date: 20070517
  Transmission Date: 20081010
  Serious: Yes (Hospitalization)
  Sender: FDA-Public Use
  Company Number: 497998

PATIENT
  Age: 39 Year
  Sex: Male

DRUGS (4)
  1. XELODA [Suspect]
     Indication: METASTASES TO CENTRAL NERVOUS SYSTEM
     Dosage: 500 MG 3 PER DAY ORAL
     Route: 048
     Dates: start: 20060901, end: 20070517
  2. XELODA [Suspect]
     Indication: METASTATIC BRONCHIAL CARCINOMA
     Dosage: 500 MG 3 PER DAY ORAL
     Route: 048
     Dates: start: 20060901, end: 20070517
  3. CHEMOTHERAPY (ANTINEOPLASTIC AGENT NOS) [Concomitant]
  4. NERONTIN (GABAPENTIN) [Concomitant]

REACTIONS (1)
  - DYSPNOEA [None]
